FAERS Safety Report 7991220-8 (Version None)
Quarter: 2011Q4

REPORT INFORMATION
  Report Type: 
  Country: None (occurrence: None)
  Receive Date: 20111219
  Receipt Date: 20111215
  Transmission Date: 20120403
  Serious: Yes (Hospitalization)
  Sender: FDA-Public Use
  Company Number: US-GLAXOSMITHKLINE-A0958185A

PATIENT
  Age: 52 Year
  Sex: Male

DRUGS (13)
  1. DOCETAXEL [Suspect]
     Indication: TRANSITIONAL CELL CANCER OF THE RENAL PELVIS AND URETER
     Dosage: 165MG EVERY 3 WEEKS
     Route: 042
     Dates: start: 20111018
  2. ASPIRIN [Concomitant]
     Dosage: 81MG PER DAY
     Route: 048
  3. RAMIPRIL [Concomitant]
     Route: 048
  4. METOPROLOL [Concomitant]
     Dosage: 25MG PER DAY
     Route: 048
  5. NEXIUM [Concomitant]
     Dosage: 40MG PER DAY
     Route: 048
  6. ALLOPURINOL [Concomitant]
     Dosage: 100MG PER DAY
     Route: 048
  7. LISINOPRIL [Concomitant]
     Dosage: 10MG PER DAY
     Route: 048
  8. BENZONATATE [Concomitant]
     Dosage: 100MG THREE TIMES PER DAY
     Route: 048
  9. LAPATINIB [Suspect]
     Indication: TRANSITIONAL CELL CANCER OF THE RENAL PELVIS AND URETER
     Dosage: 1250MG PER DAY
     Route: 048
     Dates: start: 20111018
  10. LOVENOX [Concomitant]
     Route: 058
  11. LASIX [Concomitant]
     Route: 048
  12. AMIODARONE HCL [Concomitant]
     Dosage: 100MG PER DAY
     Route: 048
  13. CIALIS [Concomitant]
     Dosage: 20MG PER DAY
     Route: 048

REACTIONS (3)
  - PNEUMONIA [None]
  - NEUTROPENIA [None]
  - DEHYDRATION [None]
